FAERS Safety Report 8791831 (Version 1)
Quarter: 2012Q4

REPORT INFORMATION
  Report Type: 
  Country: CO (occurrence: CO)
  Receive Date: 20120918
  Receipt Date: 20120918
  Transmission Date: 20130627
  Serious: Yes (Death)
  Sender: FDA-Public Use
  Company Number: CO-PFIZER INC-2012229833

PATIENT
  Age: 66 Year
  Sex: Male

DRUGS (1)
  1. SUTENT [Suspect]
     Indication: RENAL CANCER
     Dosage: 50 mg, 1x/day
     Dates: start: 20091020

REACTIONS (5)
  - Death [Fatal]
  - Nausea [Unknown]
  - Ageusia [Unknown]
  - Decreased appetite [Unknown]
  - Stomatitis [Unknown]
